FAERS Safety Report 19773297 (Version 1)
Quarter: 2021Q3

REPORT INFORMATION
  Report Type: Report from Study
  Country: None (occurrence: US)
  Receive Date: 20210901
  Receipt Date: 20210901
  Transmission Date: 20211014
  Serious: Yes (Hospitalization, Other)
  Sender: FDA-Public Use
  Company Number: US-ABBVIE-21K-163-4053599-00

PATIENT
  Sex: Female

DRUGS (5)
  1. HUMIRA [Suspect]
     Active Substance: ADALIMUMAB
     Route: 058
     Dates: start: 2016, end: 201901
  2. HUMIRA [Suspect]
     Active Substance: ADALIMUMAB
     Dosage: CITRATE FREE
     Route: 058
     Dates: start: 201901
  3. MODERNA COVID?19 VACCINE [Concomitant]
     Active Substance: CX-024414
     Dosage: DOSE 2
     Route: 030
  4. MODERNA COVID?19 VACCINE [Concomitant]
     Active Substance: CX-024414
     Indication: COVID-19 IMMUNISATION
     Dosage: DOSE 1
     Route: 030
  5. HUMIRA [Suspect]
     Active Substance: ADALIMUMAB
     Indication: RHEUMATOID ARTHRITIS
     Route: 058
     Dates: start: 201301, end: 2016

REACTIONS (17)
  - Blindness [Unknown]
  - Cerebrovascular accident [Recovered/Resolved]
  - Blood glucose increased [Unknown]
  - Osteoarthritis [Recovered/Resolved]
  - Cerebrovascular accident [Recovered/Resolved]
  - Platelet count increased [Unknown]
  - Cataract [Recovered/Resolved]
  - Skin ulcer [Recovered/Resolved]
  - Visual field defect [Not Recovered/Not Resolved]
  - Cataract [Recovered/Resolved]
  - Foot deformity [Recovered/Resolved]
  - Photopsia [Unknown]
  - Rheumatoid arthritis [Unknown]
  - Illness [Unknown]
  - Bone hypertrophy [Recovered/Resolved]
  - Upper respiratory tract infection [Recovered/Resolved]
  - Low density lipoprotein increased [Unknown]

NARRATIVE: CASE EVENT DATE: 2016
